FAERS Safety Report 6465532-3 (Version None)
Quarter: 2009Q4

REPORT INFORMATION
  Report Type: 
  Country: None (occurrence: None)
  Receive Date: 20091201
  Receipt Date: 20081203
  Transmission Date: 20100525
  Serious: No
  Sender: FDA-Public Use
  Company Number: US-AMGEN-KDL313155

PATIENT
  Sex: Female
  Weight: 74 kg

DRUGS (8)
  1. ENBREL [Suspect]
     Indication: PSORIASIS
     Route: 058
     Dates: start: 20080901
  2. KEFLEX [Concomitant]
     Dates: start: 20081009, end: 20081016
  3. TEMOVATE [Concomitant]
     Dates: start: 20080624
  4. LOVAZA [Concomitant]
  5. ASCORBIC ACID [Concomitant]
  6. VITAMIN D [Concomitant]
  7. NORGESTIMATE AND ETHINYL ESTRADIOL [Concomitant]
  8. UNSPECIFIED MEDICATION [Concomitant]

REACTIONS (5)
  - FATIGUE [None]
  - INJECTION SITE PAIN [None]
  - NASAL CONGESTION [None]
  - PYREXIA [None]
  - SKIN EXFOLIATION [None]
